FAERS Safety Report 9289318 (Version 1)
Quarter: 2013Q2

REPORT INFORMATION
  Report Type: Spontaneous
  Country: US (occurrence: US)
  Receive Date: 20130514
  Receipt Date: 20130514
  Transmission Date: 20140414
  Serious: No
  Sender: FDA-Public Use
  Company Number: US-BAYER-2013-059922

PATIENT
  Age: 66 Year
  Sex: Female
  Weight: 90.7 kg

DRUGS (5)
  1. ALEVE GELCAPS [Suspect]
     Indication: ARTHRITIS
     Dosage: 4 DF, ONCE
     Route: 048
  2. ALEVE GELCAPS [Suspect]
     Indication: ARTHRITIS
     Dosage: 7 DF, ONCE
     Route: 048
     Dates: start: 20130508, end: 20130508
  3. PRADAXA [Concomitant]
  4. METOPROLOL [Concomitant]
  5. ATIVAN [Concomitant]
     Dosage: UNK

REACTIONS (2)
  - Incorrect dose administered [None]
  - Accidental exposure to product [None]
